FAERS Safety Report 8812492 (Version 1)
Quarter: 2012Q4

REPORT INFORMATION
  Report Type: 
  Country: US (occurrence: US)
  Receive Date: 20120927
  Receipt Date: 20120927
  Transmission Date: 20130627
  Serious: Yes (Hospitalization)
  Sender: FDA-Public Use
  Company Number: US-TEVA-361271USA

PATIENT
  Age: 20 Year
  Sex: Male

DRUGS (7)
  1. CLONAZEPAM [Suspect]
     Indication: DEPRESSION
     Dosage: multiple crushed tablets
     Route: 045
  2. CLONAZEPAM [Suspect]
     Route: 065
  3. ESCITALOPRAM [Suspect]
     Indication: DEPRESSION
     Dosage: multiple crushed 20mg tablets
     Route: 045
  4. ESCITALOPRAM [Suspect]
     Dosage: 20 mg/d
     Route: 065
  5. QUETIAPINE [Suspect]
     Indication: DEPRESSION
     Dosage: multiple crushed 100mg tablets
     Route: 045
  6. QUETIAPINE [Suspect]
     Route: 065
  7. PERCOCET [Suspect]
     Dosage: multiple crushed tablets
     Route: 045

REACTIONS (2)
  - Serotonin syndrome [Recovering/Resolving]
  - Intentional overdose [Recovering/Resolving]
